FAERS Safety Report 8654156 (Version 2)
Quarter: 2012Q4

REPORT INFORMATION
  Report Type: Spontaneous
  Country: JP (occurrence: None)
  Receive Date: 20120621
  Receipt Date: 20120821
  Transmission Date: 20130627
  Serious: Yes (Death, Life-Threatening)
  Sender: FDA-Public Use
  Company Number: DSA_57894_2012

PATIENT
  Age: 78 Year
  Sex: Male

DRUGS (33)
  1. FLUOROURACIL [Suspect]
     Indication: RECTAL CANCER
     Dosage: 3500 MG DAILY INTRAVENOUS DRIP
     Route: 041
     Dates: start: 20101109, end: 20101109
  2. FLUOROURACIL [Suspect]
     Indication: RECTAL CANCER
     Dosage: 3500 MG DAILY INTRAVENOUS DRIP
     Route: 041
     Dates: start: 20101124, end: 20101124
  3. FLUOROURACIL [Suspect]
     Indication: RECTAL CANCER
     Dosage: 3500 MG DAILY INTRAVENOUS DRIP
     Route: 041
     Dates: start: 20101207, end: 20101207
  4. FLUOROURACIL [Suspect]
     Indication: RECTAL CANCER
     Dosage: 3500 MG DAILY INTRAVENOUS DRIP
     Route: 041
     Dates: start: 20110104, end: 20110104
  5. FLUOROURACIL [Suspect]
     Indication: RECTAL CANCER
     Dosage: 3500 MG DAILY INTRAVENOUS DRIP
     Route: 041
     Dates: start: 20101221, end: 20101221
  6. FLUOROURACIL [Suspect]
     Indication: RECTAL CANCER
     Dosage: 3500 MG DAILY INTRAVENOUS DRIP
     Route: 041
     Dates: start: 20101026, end: 20101026
  7. FLUOROURACIL [Suspect]
     Indication: RECTAL CANCER
     Dosage: 3500 MG DAILY INTRAVENOUS DRIP
     Route: 041
     Dates: start: 20110118, end: 20110118
  8. FLUOROURACIL [Suspect]
     Indication: RECTAL CANCER
     Dosage: 500 MG; DAILY INTRAVENOUS BOLUS
     Route: 040
     Dates: start: 20110104, end: 20110104
  9. FLUOROURACIL [Suspect]
     Indication: RECTAL CANCER
     Dosage: 500 MG; DAILY INTRAVENOUS BOLUS
     Route: 040
     Dates: start: 20110201, end: 20110201
  10. FLUOROURACIL [Suspect]
     Indication: RECTAL CANCER
     Dosage: 500 MG; DAILY INTRAVENOUS BOLUS
     Route: 040
     Dates: start: 20101026, end: 20101026
  11. FLUOROURACIL [Suspect]
     Indication: RECTAL CANCER
     Dosage: 500 MG; DAILY INTRAVENOUS BOLUS
     Route: 040
     Dates: start: 20110104, end: 20110104
  12. FLUOROURACIL [Suspect]
     Indication: RECTAL CANCER
     Dosage: 500 MG; DAILY INTRAVENOUS BOLUS
     Route: 040
     Dates: start: 20101221, end: 20101221
  13. FLUOROURACIL [Suspect]
     Indication: RECTAL CANCER
     Dosage: 500 MG; DAILY INTRAVENOUS BOLUS
     Route: 040
     Dates: start: 20101124, end: 20101124
  14. FLUOROURACIL [Suspect]
     Indication: RECTAL CANCER
     Dosage: 500 MG; DAILY INTRAVENOUS BOLUS
     Route: 040
     Dates: start: 20101124, end: 20101124
  15. FLUOROURACIL [Suspect]
     Indication: RECTAL CANCER
     Dosage: DF
     Dates: start: 20101207, end: 20101207
  16. FLUOROURACIL [Suspect]
     Indication: RECTAL CANCER
     Dosage: DF
     Dates: start: 20101109, end: 20101109
  17. FLUOROURACIL [Suspect]
     Indication: RECTAL CANCER
     Dosage: DF
     Dates: start: 20110118, end: 20110118
  18. OXALIPLATIN [Suspect]
     Indication: RECTAL CANCER
     Dosage: 120 MG; DAILY INTRAVENOUS DRIP;
     Route: 041
     Dates: start: 20101124, end: 20101124
  19. OXALIPLATIN [Suspect]
     Indication: RECTAL CANCER
     Dosage: 120 MG; DAILY INTRAVENOUS DRIP;
     Route: 041
     Dates: start: 20101207, end: 20101207
  20. OXALIPLATIN [Suspect]
     Indication: RECTAL CANCER
     Dosage: 120 MG; DAILY INTRAVENOUS DRIP;
     Route: 041
     Dates: start: 20101221, end: 20101221
  21. OXALIPLATIN [Suspect]
     Indication: RECTAL CANCER
     Dosage: 120 MG; DAILY INTRAVENOUS DRIP;
     Route: 041
     Dates: start: 20110104, end: 20110104
  22. OXALIPLATIN [Suspect]
     Indication: RECTAL CANCER
     Dosage: 120 MG; DAILY INTRAVENOUS DRIP;
     Route: 041
     Dates: start: 20110118, end: 20110118
  23. OXALIPLATIN [Suspect]
     Indication: RECTAL CANCER
     Dosage: 120 MG; DAILY INTRAVENOUS DRIP;
     Route: 041
     Dates: start: 20101026, end: 20101109
  24. OXALIPLATIN [Suspect]
     Indication: RECTAL CANCER
     Dosage: 120 MG; DAILY INTRAVENOUS DRIP;
     Route: 041
     Dates: start: 20110201, end: 20110201
  25. OXALIPLATIN [Suspect]
     Indication: RECTAL CANCER
     Dosage: 120 MG; DAILY INTRAVENOUS BOLUS
     Route: 040
     Dates: start: 20101109, end: 20101109
  26. OXALIPLATIN [Suspect]
     Indication: RECTAL CANCER
     Dosage: 120 MG; DAILY INTRAVENOUS BOLUS
     Route: 040
     Dates: start: 20110201, end: 20110201
  27. LEUCOVORIN CALCIUM [Concomitant]
  28. CIPROFLOXACIN HYDROCHLORIDE [Concomitant]
  29. SOLU-MEDROL [Concomitant]
  30. FUNGIZONE [Concomitant]
  31. HUMALOG [Concomitant]
  32. PREDONINE [Concomitant]
  33. PREDNISOLONE [Concomitant]

REACTIONS (6)
  - Interstitial lung disease [None]
  - Respiratory distress [None]
  - Malaise [None]
  - Rectal cancer [None]
  - Condition aggravated [None]
  - Pyrexia [None]
